FAERS Safety Report 16385449 (Version 8)
Quarter: 2020Q1

REPORT INFORMATION
  Report Type: Spontaneous
  Country: US (occurrence: US)
  Receive Date: 20190603
  Receipt Date: 20200103
  Transmission Date: 20200409
  Serious: Yes (Other)
  Sender: FDA-Public Use
  Company Number: PHEH2019US022935

PATIENT
  Age: 72 Year
  Sex: Female
  Weight: 68.6 kg

DRUGS (5)
  1. AFINITOR [Suspect]
     Active Substance: EVEROLIMUS
     Dosage: 5 MG, QD
     Route: 065
  2. AFINITOR [Suspect]
     Active Substance: EVEROLIMUS
     Dosage: 10 MG, QD
     Route: 048
     Dates: start: 20190611
  3. AFINITOR [Suspect]
     Active Substance: EVEROLIMUS
     Dosage: 5 MG
     Route: 065
     Dates: start: 20190827
  4. LETROZOLE. [Concomitant]
     Active Substance: LETROZOLE
     Indication: PRODUCT USED FOR UNKNOWN INDICATION
     Dosage: 2.5 MG, QD
     Route: 048
     Dates: start: 20190412
  5. AFINITOR [Suspect]
     Active Substance: EVEROLIMUS
     Indication: UTERINE CANCER
     Dosage: 10 MG, QD
     Route: 048
     Dates: start: 20190515

REACTIONS (21)
  - Hypertriglyceridaemia [Recovering/Resolving]
  - Dysgeusia [Unknown]
  - Oedema peripheral [Unknown]
  - Weight decreased [Not Recovered/Not Resolved]
  - Fatigue [Unknown]
  - Incontinence [Unknown]
  - Decreased appetite [Not Recovered/Not Resolved]
  - Off label use [Unknown]
  - Eating disorder [Unknown]
  - Nausea [Recovering/Resolving]
  - Night sweats [Unknown]
  - Pruritus [Unknown]
  - Constipation [Unknown]
  - Blood creatinine increased [Unknown]
  - Abdominal pain [Unknown]
  - Concomitant disease aggravated [Recovering/Resolving]
  - Anaemia [Recovered/Resolved]
  - Nodule [Unknown]
  - Insomnia [Unknown]
  - Stomatitis [Unknown]
  - Diarrhoea [Unknown]

NARRATIVE: CASE EVENT DATE: 201905
